FAERS Safety Report 20693666 (Version 2)
Quarter: 2022Q3

REPORT INFORMATION
  Report Type: Spontaneous
  Country: US (occurrence: US)
  Receive Date: 20220411
  Receipt Date: 20220929
  Transmission Date: 20221026
  Serious: Yes (Other)
  Sender: FDA-Public Use
  Company Number: US-SA-SAC20220407001392

PATIENT
  Age: 47 Year
  Sex: Female

DRUGS (1)
  1. ZANTAC [Suspect]
     Active Substance: RANITIDINE HYDROCHLORIDE
     Indication: Dyspepsia
     Dosage: UNK; FREQ: OTHER
     Dates: start: 201101, end: 201612

REACTIONS (6)
  - Bladder cancer stage IV [Not Recovered/Not Resolved]
  - Disease progression [Unknown]
  - Colorectal cancer stage IV [Not Recovered/Not Resolved]
  - Disease progression [Unknown]
  - Hepatic cancer stage IV [Not Recovered/Not Resolved]
  - Disease progression [Unknown]

NARRATIVE: CASE EVENT DATE: 20130213
